FAERS Safety Report 17309493 (Version 1)
Quarter: 2020Q1

REPORT INFORMATION
  Report Type: Report from Study
  Country: CA (occurrence: CA)
  Receive Date: 20200123
  Receipt Date: 20200123
  Transmission Date: 20200409
  Serious: Yes (Hospitalization)
  Sender: FDA-Public Use
  Company Number: CA-BAYER-2019-228549

PATIENT
  Sex: Male

DRUGS (1)
  1. STIVARGA [Suspect]
     Active Substance: REGORAFENIB
     Indication: MESOTHELIOMA
     Dosage: UNK

REACTIONS (3)
  - Hospitalisation [Unknown]
  - Off label use [None]
  - Product use in unapproved indication [None]
